FAERS Safety Report 7438565-8 (Version None)
Quarter: 2011Q2

REPORT INFORMATION
  Report Type: 
  Country: None (occurrence: None)
  Receive Date: 20110426
  Receipt Date: 20110422
  Transmission Date: 20111010
  Serious: Yes (Hospitalization, Other)
  Sender: FDA-Public Use
  Company Number: US-ABBOTT-11P-163-0721205-00

PATIENT
  Sex: Female
  Weight: 88.53 kg

DRUGS (6)
  1. MERCAPTOPURINE [Suspect]
     Indication: CROHN'S DISEASE
     Dates: start: 20050101, end: 20100801
  2. LISINOPRIL [Concomitant]
     Indication: HYPERTENSION
  3. HUMIRA [Suspect]
     Indication: CROHN'S DISEASE
     Route: 058
     Dates: start: 20100801, end: 20110410
  4. HYDROCHLOROTHIAZIDE [Concomitant]
     Indication: HYPERTENSION
  5. MERCAPTOPURINE [Suspect]
     Dates: start: 20100801, end: 20100901
  6. SIMVASTATIN [Concomitant]
     Indication: BLOOD CHOLESTEROL INCREASED

REACTIONS (14)
  - CROHN'S DISEASE [None]
  - POOR QUALITY DRUG ADMINISTERED [None]
  - HEPATIC ENZYME INCREASED [None]
  - HEPATIC STEATOSIS [None]
  - PRODUCT COLOUR ISSUE [None]
  - INFECTION [None]
  - DIARRHOEA [None]
  - FAECES DISCOLOURED [None]
  - RECTAL DISCHARGE [None]
  - FLATULENCE [None]
  - DEHYDRATION [None]
  - PRODUCT QUALITY ISSUE [None]
  - BLOOD POTASSIUM DECREASED [None]
  - FOOD POISONING [None]
